FAERS Safety Report 23829969 (Version 1)
Quarter: 2024Q2

REPORT INFORMATION
  Report Type: Spontaneous
  Country: CN (occurrence: CN)
  Receive Date: 20240508
  Receipt Date: 20240508
  Transmission Date: 20240716
  Serious: Yes (Hospitalization)
  Sender: FDA-Public Use
  Company Number: CN-Bio-Thera Solutions, Ltd.-2156685

PATIENT
  Age: 66 Year
  Sex: Male

DRUGS (3)
  1. AVZIVI [Suspect]
     Active Substance: BEVACIZUMAB-TNJN
     Indication: Colon cancer
     Route: 041
     Dates: start: 20240411, end: 20240411
  2. OXALIPLATIN [Suspect]
     Active Substance: OXALIPLATIN
     Route: 041
     Dates: start: 20240411, end: 20240411
  3. CAPECITABINE [Suspect]
     Active Substance: CAPECITABINE
     Route: 048
     Dates: start: 20240411, end: 20240415

REACTIONS (1)
  - Hepatic function abnormal [Recovering/Resolving]

NARRATIVE: CASE EVENT DATE: 20240414
